FAERS Safety Report 6020855-7 (Version None)
Quarter: 2008Q4

REPORT INFORMATION
  Report Type: 
  Country: None (occurrence: None)
  Receive Date: 20081229
  Receipt Date: 20081218
  Transmission Date: 20090506
  Serious: Yes (Death)
  Sender: FDA-Public Use
  Company Number: US-JNJFOC-20081205479

PATIENT
  Age: 39 Year
  Sex: Female

DRUGS (6)
  1. TOPIRAMATE [Suspect]
     Indication: DRUG USE FOR UNKNOWN INDICATION
  2. ASPIRIN [Suspect]
     Indication: SUICIDE ATTEMPT
  3. ACETAMINOPHEN [Suspect]
     Indication: SUICIDE ATTEMPT
  4. AMITRIPTYLINE HCL [Suspect]
     Indication: SUICIDE ATTEMPT
  5. VALPROIC ACID [Suspect]
     Indication: SUICIDE ATTEMPT
  6. DIAZEPAM [Suspect]
     Indication: SUICIDE ATTEMPT

REACTIONS (1)
  - COMPLETED SUICIDE [None]
